FAERS Safety Report 14945891 (Version 1)
Quarter: 2018Q2

REPORT INFORMATION
  Report Type: Spontaneous
  Country: US (occurrence: US)
  Receive Date: 20180529
  Receipt Date: 20180529
  Transmission Date: 20180711
  Serious: Yes (Hospitalization)
  Sender: FDA-Public Use
  Company Number: US-JNJFOC-20180524105

PATIENT
  Age: 36 Year
  Sex: Female

DRUGS (3)
  1. PANCREATIC ENZYMES [Concomitant]
     Active Substance: UNSPECIFIED INGREDIENT
     Indication: PRODUCT USED FOR UNKNOWN INDICATION
     Route: 065
  2. OXYCODONE [Suspect]
     Active Substance: OXYCODONE
     Indication: PRODUCT USED FOR UNKNOWN INDICATION
     Dosage: 3-4 TABLETS OF OXYCODONE 5MG, DAILY FOR SEVERAL MONTHS
     Route: 065
  3. ACETAMINOPHEN. [Suspect]
     Active Substance: ACETAMINOPHEN
     Indication: PRODUCT USED FOR UNKNOWN INDICATION
     Dosage: 325 MG, DAILY FOR SEVERAL MONTHS
     Route: 065

REACTIONS (4)
  - Metabolic acidosis [Recovered/Resolved]
  - Incorrect dose administered [Unknown]
  - Drug administration error [Unknown]
  - Incorrect drug administration duration [Unknown]
